FAERS Safety Report 5002330-1 (Version None)
Quarter: 2006Q2

REPORT INFORMATION
  Report Type: 
  Country: None (occurrence: None)
  Receive Date: 20060510
  Receipt Date: 20060503
  Transmission Date: 20061013
  Serious: Yes (Other)
  Sender: FDA-Public Use
  Company Number: 2006049423

PATIENT

DRUGS (1)
  1. CADUET [Suspect]
     Indication: ILL-DEFINED DISORDER

REACTIONS (1)
  - ACUTE CORONARY SYNDROME [None]
